FAERS Safety Report 6935225-4 (Version None)
Quarter: 2010Q3

REPORT INFORMATION
  Report Type: 
  Country: None (occurrence: None)
  Receive Date: 20100822
  Receipt Date: 20100817
  Transmission Date: 20110219
  Serious: Yes (Death, Hospitalization, Other)
  Sender: FDA-Public Use
  Company Number: PHFR2010GB01474

PATIENT
  Sex: Male

DRUGS (3)
  1. CLOZARIL [Suspect]
     Indication: SCHIZOPHRENIA
     Dosage: 800 MG DAILY
     Route: 048
     Dates: start: 20040201
  2. AMISULPRIDE [Suspect]
     Dosage: UNK
  3. VALPROATE SODIUM [Concomitant]
     Indication: CONVULSION
     Dosage: 1000 MG, UNK
     Route: 048

REACTIONS (14)
  - CHOKING [None]
  - FEELING ABNORMAL [None]
  - HYPERHIDROSIS [None]
  - HYPOTENSION [None]
  - LIP AND/OR ORAL CAVITY CANCER [None]
  - LIP ULCERATION [None]
  - LUNG DISORDER [None]
  - MALIGNANT NEOPLASM PROGRESSION [None]
  - PLASTIC SURGERY TO THE FACE [None]
  - PSYCHOTIC DISORDER [None]
  - RESPIRATORY DISORDER [None]
  - SHOCK [None]
  - SKIN ULCER EXCISION [None]
  - THROAT CANCER [None]
